FAERS Safety Report 8372450-2 (Version None)
Quarter: 2012Q2

REPORT INFORMATION
  Report Type: 
  Country: None (occurrence: None)
  Receive Date: 20120521
  Receipt Date: 20120511
  Transmission Date: 20120825
  Serious: Yes (Other)
  Sender: FDA-Public Use
  Company Number: US-SANOFI-AVENTIS-2012SA019819

PATIENT
  Age: 74 Year
  Sex: Male
  Weight: 99.79 kg

DRUGS (5)
  1. ELIGARD [Suspect]
     Route: 065
     Dates: start: 20111202, end: 20111202
  2. CASODEX [Concomitant]
     Indication: PROSTATE CANCER
     Dates: start: 20090825
  3. ELIGARD [Suspect]
     Indication: PROSTATE CANCER
     Route: 065
     Dates: start: 20120102, end: 20120102
  4. OMEPRAZOLE [Concomitant]
     Dates: start: 20050101
  5. QUINAPRIL [Concomitant]
     Indication: HYPERTENSION

REACTIONS (3)
  - BLOOD TESTOSTERONE INCREASED [None]
  - PROSTATIC SPECIFIC ANTIGEN INCREASED [None]
  - PRODUCT QUALITY ISSUE [None]
